FAERS Safety Report 8821581 (Version 3)
Quarter: 2013Q1

REPORT INFORMATION
  Report Type: Report from Study
  Country: US (occurrence: US)
  Receive Date: 20121002
  Receipt Date: 20130312
  Transmission Date: 20140127
  Serious: No
  Sender: FDA-Public Use
  Company Number: US-VERTEX PHARMACEUTICAL INC.-2012-020961

PATIENT
  Sex: Female

DRUGS (4)
  1. VX-950 (TELAPREVIR) [Suspect]
     Indication: HEPATITIS C
     Dosage: 750 MG, TID
     Route: 048
     Dates: start: 20120524, end: 20120819
  2. PEGASYS [Suspect]
     Indication: HEPATITIS C
     Dosage: 180 ?G, QW
     Route: 058
     Dates: start: 20120524
  3. RIBASPHERE [Suspect]
     Indication: HEPATITIS C
     Dosage: 400MG AM, 600MGPM
     Route: 048
     Dates: start: 20120524
  4. RIBASPHERE [Suspect]
     Dosage: 200 MGAM, 400 MG PM

REACTIONS (3)
  - Dry skin [Unknown]
  - Rash maculo-papular [Recovered/Resolved]
  - Pruritus [Unknown]
